FAERS Safety Report 9050511 (Version 1)
Quarter: 2013Q1

REPORT INFORMATION
  Report Type: Spontaneous
  Country: US (occurrence: US)
  Receive Date: 20130205
  Receipt Date: 20130205
  Transmission Date: 20140127
  Serious: No
  Sender: FDA-Public Use
  Company Number: US-009507513-1302USA000476

PATIENT
  Age: 29 Year
  Sex: Female
  Weight: 70.3 kg

DRUGS (1)
  1. IMPLANON [Suspect]
     Indication: CONTRACEPTION
     Dosage: 1 ROD FOR 3 YEARS
     Route: 059
     Dates: start: 20101229

REACTIONS (8)
  - Weight increased [Unknown]
  - Implant site pain [Unknown]
  - Acne [Unknown]
  - Pain in extremity [Unknown]
  - Amenorrhoea [Unknown]
  - Mood altered [Unknown]
  - Migraine [Unknown]
  - Breast tenderness [Unknown]
